FAERS Safety Report 25374386 (Version 2)
Quarter: 2025Q2

REPORT INFORMATION
  Report Type: Spontaneous
  Country: DE (occurrence: DE)
  Receive Date: 20250529
  Receipt Date: 20250605
  Transmission Date: 20250717
  Serious: Yes (Other)
  Sender: TEVA
  Company Number: DE-TEVA-VS-3334084

PATIENT
  Age: 23 Year
  Sex: Female

DRUGS (6)
  1. HYDROXYCHLOROQUINE [Suspect]
     Active Substance: HYDROXYCHLOROQUINE
     Indication: Cutaneous lupus erythematosus
     Route: 065
  2. CYCLOPHOSPHAMIDE [Concomitant]
     Active Substance: CYCLOPHOSPHAMIDE
     Indication: Invasive ductal breast carcinoma
     Route: 065
  3. CARBOPLATIN [Concomitant]
     Active Substance: CARBOPLATIN
     Indication: Invasive ductal breast carcinoma
     Route: 065
  4. PEMBROLIZUMAB [Suspect]
     Active Substance: PEMBROLIZUMAB
     Indication: Invasive ductal breast carcinoma
     Route: 065
  5. PACLITAXEL [Concomitant]
     Active Substance: PACLITAXEL
     Indication: Invasive ductal breast carcinoma
     Route: 065
  6. EPIRUBICIN [Concomitant]
     Active Substance: EPIRUBICIN
     Indication: Invasive ductal breast carcinoma
     Route: 065

REACTIONS (3)
  - Lupus-like syndrome [Recovered/Resolved with Sequelae]
  - Treatment noncompliance [Unknown]
  - Intentional product misuse [Unknown]
